FAERS Safety Report 8062436-X (Version None)
Quarter: 2012Q1

REPORT INFORMATION
  Report Type: 
  Country: None (occurrence: None)
  Receive Date: 20120123
  Receipt Date: 20120111
  Transmission Date: 20120608
  Serious: Yes (Hospitalization)
  Sender: FDA-Public Use
  Company Number: US-ACTELION-A-US2011-55475

PATIENT

DRUGS (3)
  1. EPOPROSTENOL SODIUM [Suspect]
     Indication: PULMONARY ARTERIAL HYPERTENSION
     Dosage: 40 NG/KG, PER MIN
     Route: 042
     Dates: start: 20110208
  2. EPOPROSTENOL SODIUM [Suspect]
     Dosage: 38 NG/KG, PER MIN
     Route: 042
  3. TADALAFIL [Concomitant]
     Dosage: UNK
     Dates: start: 20091222

REACTIONS (9)
  - DEVICE RELATED INFECTION [None]
  - FLUID OVERLOAD [None]
  - HYPOTENSION [None]
  - CHILLS [None]
  - PYREXIA [None]
  - DYSPNOEA [None]
  - STAPHYLOCOCCAL BACTERAEMIA [None]
  - DYSPNOEA EXERTIONAL [None]
  - RENAL FAILURE ACUTE [None]
